FAERS Safety Report 9868659 (Version 2)
Quarter: 2014Q2

REPORT INFORMATION
  Report Type: Spontaneous
  Country: US (occurrence: US)
  Receive Date: 20140204
  Receipt Date: 20140428
  Transmission Date: 20141212
  Serious: Yes (Hospitalization)
  Sender: FDA-Public Use
  Company Number: US-B.I. PHARMACEUTICALS,INC./RIDGEFIELD-2014-BI-04727BP

PATIENT
  Age: 68 Year
  Sex: Male
  Weight: 145 kg

DRUGS (1)
  1. COMBIVENT [Suspect]
     Indication: CHRONIC OBSTRUCTIVE PULMONARY DISEASE
     Dosage: STRENGTH: 20 MCG/100 MCG; DAILY DOSE: 20 MCG/100 MCG
     Route: 055
     Dates: start: 201312

REACTIONS (2)
  - Cardiac failure congestive [Recovered/Resolved]
  - Product quality issue [Recovered/Resolved]
